FAERS Safety Report 21907805 (Version 1)
Quarter: 2023Q1

REPORT INFORMATION
  Report Type: Spontaneous
  Country: US (occurrence: US)
  Receive Date: 20230125
  Receipt Date: 20230125
  Transmission Date: 20230417
  Serious: No
  Sender: FDA-Public Use
  Company Number: US-TARO PHARMACEUTICALS USA INC.-2022TAR01404

PATIENT

DRUGS (2)
  1. DOXEPIN [Suspect]
     Active Substance: DOXEPIN
     Indication: Anxiety
     Dosage: 10 MG, 1 DOSE PER ALTERNATIVE DAY
     Route: 048
     Dates: start: 20221208
  2. DOXEPIN [Suspect]
     Active Substance: DOXEPIN
     Indication: Depression
     Dosage: 20 MG, 1 DOSE PER ALTERNATIVE DAY, 3 WEEKS
     Route: 048

REACTIONS (5)
  - Somnolence [Unknown]
  - Intentional product misuse [Unknown]
  - Drug ineffective [Unknown]
  - Insomnia [Unknown]
  - Tinnitus [Unknown]
